FAERS Safety Report 5512599-2 (Version None)
Quarter: 2007Q4

REPORT INFORMATION
  Report Type: 
  Country: None (occurrence: None)
  Receive Date: 20071108
  Receipt Date: 20071108
  Transmission Date: 20080405
  Serious: Yes (Other)
  Sender: FDA-Public Use
  Company Number: None

PATIENT
  Age: 41 Year
  Sex: Female
  Weight: 79.3795 kg

DRUGS (2)
  1. CYMBALTA [Suspect]
     Indication: INTERVERTEBRAL DISC OPERATION
     Dosage: 30 MG 1 DAILY PO
     Route: 048
     Dates: start: 20060415, end: 20071101
  2. CYMBALTA [Suspect]
     Indication: NEUROPATHY
     Dosage: 30 MG 1 DAILY PO
     Route: 048
     Dates: start: 20060415, end: 20071101

REACTIONS (16)
  - COLD SWEAT [None]
  - DECREASED APPETITE [None]
  - DIARRHOEA [None]
  - DISTURBANCE IN ATTENTION [None]
  - DIZZINESS [None]
  - DYSPEPSIA [None]
  - FEELING HOT [None]
  - IMPAIRED DRIVING ABILITY [None]
  - IMPAIRED WORK ABILITY [None]
  - INTERVERTEBRAL DISC OPERATION [None]
  - MOOD SWINGS [None]
  - MUSCLE TWITCHING [None]
  - NAUSEA [None]
  - SURGICAL PROCEDURE REPEATED [None]
  - VERTIGO [None]
  - WITHDRAWAL SYNDROME [None]
